FAERS Safety Report 6554642-8 (Version None)
Quarter: 2010Q1

REPORT INFORMATION
  Report Type: 
  Country: None (occurrence: None)
  Receive Date: 20100127
  Receipt Date: 20100118
  Transmission Date: 20100710
  Serious: Yes (Other)
  Sender: FDA-Public Use
  Company Number: DE-PFIZER INC-2009312551

PATIENT
  Age: 59 Year
  Sex: Male
  Weight: 81 kg

DRUGS (1)
  1. ZITHROMAX [Suspect]
     Indication: PHARYNGITIS
     Dosage: 250 MG, 1X/DAY
     Dates: start: 20090901, end: 20090101

REACTIONS (2)
  - MACULAR DEGENERATION [None]
  - VISUAL IMPAIRMENT [None]
